FAERS Safety Report 5316668-1 (Version None)
Quarter: 2007Q2

REPORT INFORMATION
  Report Type: 
  Country: None (occurrence: None)
  Receive Date: 20070430
  Receipt Date: 20070430
  Transmission Date: 20071010
  Serious: Yes (Other)
  Sender: FDA-Public Use
  Company Number: None

PATIENT
  Age: 57 Year
  Sex: Female
  Weight: 51.4 kg

DRUGS (1)
  1. ZYVOX [Suspect]
     Indication: ALPHA HAEMOLYTIC STREPTOCOCCAL INFECTION
     Dosage: 600MG Q12H PO
     Route: 048
     Dates: start: 20070416, end: 20070425

REACTIONS (1)
  - WHITE BLOOD CELL COUNT DECREASED [None]
